FAERS Safety Report 4538307-X (Version None)
Quarter: 2004Q4

REPORT INFORMATION
  Report Type: 
  Country: None (occurrence: None)
  Receive Date: 20041221
  Receipt Date: 20041206
  Transmission Date: 20050328
  Serious: Yes (Other)
  Sender: FDA-Public Use
  Company Number: 2004-BP-075328BP

PATIENT
  Age: 50 Year
  Sex: Male

DRUGS (3)
  1. MIRAPEX [Suspect]
     Indication: PARKINSON'S DISEASE
     Dosage: 1.0MG TID
     Dates: start: 20030401
  2. ELDERPRYL (SELEGILINE HYDROCHLORIDE) [Concomitant]
  3. PRILOSEC [Concomitant]

REACTIONS (1)
  - PATHOLOGICAL GAMBLING [None]
